FAERS Safety Report 8838610 (Version 3)
Quarter: 2013Q1

REPORT INFORMATION
  Report Type: Spontaneous
  Country: US (occurrence: US)
  Receive Date: 20121012
  Receipt Date: 20130311
  Transmission Date: 20140127
  Serious: Yes (Hospitalization, Other)
  Sender: FDA-Public Use
  Company Number: US-ASTRAZENECA-2012SE76530

PATIENT
  Age: 49 Year
  Sex: Female

DRUGS (3)
  1. NEXIUM [Suspect]
     Route: 048
  2. VIMOVO [Suspect]
     Indication: ARTHRITIS
     Route: 048
  3. ALEVE [Suspect]
     Route: 065

REACTIONS (8)
  - Intervertebral disc protrusion [Unknown]
  - Irritable bowel syndrome [Unknown]
  - Cyanosis [Unknown]
  - Fibromyalgia [Unknown]
  - Therapeutic response unexpected [Unknown]
  - Confusional state [Unknown]
  - Drug ineffective [Unknown]
  - Drug dose omission [Unknown]
